FAERS Safety Report 4413393-6 (Version None)
Quarter: 2004Q2

REPORT INFORMATION
  Report Type: 
  Country: None (occurrence: None)
  Receive Date: 20040630
  Receipt Date: 20040319
  Transmission Date: 20050107
  Serious: No
  Sender: FDA-Public Use
  Company Number: 04P-163-0254361

PATIENT
  Age: 70 Year
  Sex: Female
  Weight: 63.5036 kg

DRUGS (6)
  1. HUMIRA [Suspect]
     Indication: RHEUMATOID ARTHRITIS
     Dosage: SEE IMAGE
     Route: 058
     Dates: start: 20030101, end: 20040201
  2. HUMIRA [Suspect]
     Indication: RHEUMATOID ARTHRITIS
     Dosage: SEE IMAGE
     Route: 058
     Dates: start: 20040201, end: 20040301
  3. HUMIRA [Suspect]
     Indication: RHEUMATOID ARTHRITIS
     Dosage: SEE IMAGE
     Route: 058
     Dates: start: 20040301
  4. PREDNISONE TAB [Concomitant]
  5. LEFLUNOMIDE [Concomitant]
  6. CELECOXIB [Concomitant]

REACTIONS (2)
  - DRUG INEFFECTIVE [None]
  - JOINT SWELLING [None]
